FAERS Safety Report 10727816 (Version 1)
Quarter: 2015Q1

REPORT INFORMATION
  Report Type: Spontaneous
  Country: DK (occurrence: DK)
  Receive Date: 20150121
  Receipt Date: 20150121
  Transmission Date: 20150721
  Serious: Yes (Other)
  Sender: FDA-Public Use
  Company Number: DK-GLAXOSMITHKLINE-DK2015007047

PATIENT
  Age: 43 Year
  Sex: Female
  Weight: 72 kg

DRUGS (1)
  1. AVAMYS [Suspect]
     Active Substance: FLUTICASONE FUROATE
     Indication: HYPERSENSITIVITY
     Dosage: DOSAGE: 2 SPRAYS IN EACH NOSTRIL 1 X DAILY, STRENGTH: 27.5 MICROGR
     Route: 045
     Dates: start: 20140711, end: 20140724

REACTIONS (1)
  - Nasal abscess [Recovered/Resolved]

NARRATIVE: CASE EVENT DATE: 20140717
